FAERS Safety Report 6680000-1 (Version None)
Quarter: 2010Q2

REPORT INFORMATION
  Report Type: 
  Country: None (occurrence: None)
  Receive Date: 20100413
  Receipt Date: 20100111
  Transmission Date: 20101027
  Serious: Yes (Death, Hospitalization)
  Sender: FDA-Public Use
  Company Number: GB-TEVA-230523ISR

PATIENT
  Sex: Male

DRUGS (12)
  1. PREDNISOLONE [Suspect]
     Indication: PROSTATE CANCER
     Route: 048
     Dates: start: 20081002, end: 20090104
  2. PREDNISOLONE [Suspect]
     Route: 048
     Dates: start: 20090105
  3. ABIRATERONE ACETATE OR PLACEBO [Suspect]
     Indication: PROSTATE CANCER
     Route: 048
     Dates: start: 20081002, end: 20090105
  4. ABIRATERONE ACETATE OR PLACEBO [Suspect]
     Route: 048
     Dates: start: 20081219
  5. BENDROFLUMETHIAZIDE [Concomitant]
     Indication: HYPERTENSION
     Route: 048
     Dates: start: 20040101
  6. PARACETAMOL [Concomitant]
     Indication: CANCER PAIN
     Route: 048
     Dates: start: 20080601
  7. MORPHINE SULFATE [Concomitant]
     Indication: CANCER PAIN
     Route: 048
     Dates: start: 20080901
  8. DIHYDROCODEINE BITARTRATE INJ [Concomitant]
     Indication: CANCER PAIN
     Route: 048
     Dates: start: 20080901
  9. ACETYLSALICYLIC ACID [Concomitant]
     Indication: PROPHYLAXIS
     Route: 048
     Dates: start: 20080901
  10. GOSERELIN [Concomitant]
     Indication: PROSTATE CANCER
     Route: 058
     Dates: start: 20061001
  11. NULYTELY [Concomitant]
     Indication: CONSTIPATION
     Route: 048
     Dates: start: 20081010
  12. GOSERELIN [Concomitant]
     Route: 058
     Dates: start: 20081002

REACTIONS (4)
  - ANAEMIA [None]
  - DISEASE PROGRESSION [None]
  - LOWER RESPIRATORY TRACT INFECTION [None]
  - PROSTATE CANCER METASTATIC [None]
